FAERS Safety Report 5394269-7 (Version None)
Quarter: 2007Q3

REPORT INFORMATION
  Report Type: 
  Country: None (occurrence: None)
  Receive Date: 20070723
  Receipt Date: 20070522
  Transmission Date: 20080115
  Serious: No
  Sender: FDA-Public Use
  Company Number: A0652366A

PATIENT
  Age: 39 Year
  Sex: Female

DRUGS (8)
  1. AVANDIA [Suspect]
     Dosage: 4MG PER DAY
     Route: 048
     Dates: start: 20040101
  2. GLUCOVANCE [Concomitant]
  3. ADALAT [Concomitant]
  4. METOPROLOL TARTRATE [Concomitant]
  5. HYDROCHLOROTHIAZIDE [Concomitant]
  6. COZAAR [Concomitant]
  7. NEXIUM [Concomitant]
  8. OXYGEN [Concomitant]

REACTIONS (3)
  - DYSPNOEA [None]
  - SLEEP APNOEA SYNDROME [None]
  - WEIGHT INCREASED [None]
